FAERS Safety Report 14241154 (Version 1)
Quarter: 2017Q4

REPORT INFORMATION
  Report Type: Spontaneous
  Country: SE (occurrence: SE)
  Receive Date: 20171130
  Receipt Date: 20171130
  Transmission Date: 20180321
  Serious: Yes (Hospitalization)
  Sender: FDA-Public Use
  Company Number: SE-BAUSCH-BL-2017-032521

PATIENT
  Age: 44 Year
  Sex: Male
  Weight: 76 kg

DRUGS (3)
  1. DICLOFENAC [Suspect]
     Active Substance: DICLOFENAC
     Indication: PROSTATITIS
     Route: 065
     Dates: start: 20170928, end: 20171115
  2. SINALFA 5 MG TABLETT [Suspect]
     Active Substance: TERAZOSIN HYDROCHLORIDE
     Indication: PROSTATITIS
     Route: 065
     Dates: start: 20170928, end: 20171115
  3. IDOTRIM [Concomitant]
     Indication: PROSTATITIS

REACTIONS (1)
  - Palpitations [Recovering/Resolving]

NARRATIVE: CASE EVENT DATE: 20170929
